FAERS Safety Report 13509299 (Version 1)
Quarter: 2017Q2

REPORT INFORMATION
  Report Type: Spontaneous
  Country: FR (occurrence: FR)
  Receive Date: 20170503
  Receipt Date: 20170503
  Transmission Date: 20170830
  Serious: Yes (Other)
  Sender: FDA-Public Use
  Company Number: FR-PFIZER INC-2017184615

PATIENT
  Age: 60 Year
  Sex: Male

DRUGS (2)
  1. ZAVEDOS [Suspect]
     Active Substance: IDARUBICIN
     Dosage: 19 MG, CYCLIC
     Route: 042
     Dates: start: 20170210, end: 20170215
  2. CYTARABINE ACCORD [Suspect]
     Active Substance: CYTARABINE
     Dosage: 420 MG, CYCLIC
     Route: 042
     Dates: start: 20170210, end: 20170215

REACTIONS (2)
  - Neutropenia [Recovered/Resolved]
  - Bone marrow failure [Recovered/Resolved]

NARRATIVE: CASE EVENT DATE: 20170214
